FAERS Safety Report 7988766-5 (Version None)
Quarter: 2011Q4

REPORT INFORMATION
  Report Type: 
  Country: None (occurrence: None)
  Receive Date: 20111219
  Receipt Date: 20111209
  Transmission Date: 20120403
  Serious: Yes (Hospitalization)
  Sender: FDA-Public Use
  Company Number: US-BIOGENIDEC-2011BI034832

PATIENT
  Age: 30 Year
  Sex: Female

DRUGS (6)
  1. AVONEX [Suspect]
     Indication: MULTIPLE SCLEROSIS
     Route: 030
     Dates: start: 20091230
  2. GABAPENTIN [Concomitant]
     Indication: PAIN IN EXTREMITY
  3. BACLOFEN [Concomitant]
     Indication: MUSCLE SPASMS
  4. GABAPENTIN [Concomitant]
     Indication: HYPOAESTHESIA
  5. VERAPAMIL [Concomitant]
     Indication: HYPERTENSION
  6. BENAZEPRIL HYDROCHLORIDE [Concomitant]
     Indication: HYPERTENSION

REACTIONS (1)
  - OBESITY SURGERY [None]
